FAERS Safety Report 25663671 (Version 1)
Quarter: 2025Q3

REPORT INFORMATION
  Report Type: Report from Study
  Country: PK (occurrence: PK)
  Receive Date: 20250811
  Receipt Date: 20250811
  Transmission Date: 20251021
  Serious: Yes (Death)
  Sender: ROCHE
  Company Number: PK-ROCHE-10000356340

PATIENT
  Age: 66 Year
  Sex: Female

DRUGS (2)
  1. RITUXIMAB [Suspect]
     Active Substance: RITUXIMAB
     Indication: Diffuse large B-cell lymphoma
     Route: 042
  2. RITUXIMAB [Suspect]
     Active Substance: RITUXIMAB
     Route: 042
     Dates: start: 20250621

REACTIONS (3)
  - Pyrexia [Fatal]
  - Asthenia [Fatal]
  - Vomiting [Fatal]

NARRATIVE: CASE EVENT DATE: 20250725
